FAERS Safety Report 24709778 (Version 1)
Quarter: 2024Q4

REPORT INFORMATION
  Report Type: Spontaneous
  Country: US (occurrence: US)
  Receive Date: 20241209
  Receipt Date: 20241209
  Transmission Date: 20250115
  Serious: No
  Sender: ROCHE
  Company Number: US-ROCHE-10000152077

PATIENT
  Sex: Male

DRUGS (2)
  1. HEMLIBRA [Suspect]
     Active Substance: EMICIZUMAB-KXWH
     Indication: Factor VIII deficiency
     Dosage: STRENGTH- 150MG/ML
     Route: 058
     Dates: start: 202409
  2. HEMLIBRA [Suspect]
     Active Substance: EMICIZUMAB-KXWH
     Dosage: STRENGTH- 300MG/2ML
     Route: 058
     Dates: start: 202409

REACTIONS (1)
  - Haemorrhage [Recovered/Resolved]
